FAERS Safety Report 21060670 (Version 1)
Quarter: 2022Q3

REPORT INFORMATION
  Report Type: Report from Study
  Country: CA (occurrence: CA)
  Receive Date: 20220708
  Receipt Date: 20220708
  Transmission Date: 20221027
  Serious: Yes (Life-Threatening, Hospitalization, Disabling)
  Sender: FDA-Public Use
  Company Number: CA-ABBVIE-19K-028-2761058-00

PATIENT
  Age: 51 Year
  Sex: Female
  Weight: 109 kg

DRUGS (1)
  1. HUMIRA [Suspect]
     Active Substance: ADALIMUMAB
     Indication: Pyoderma gangrenosum
     Route: 058
     Dates: start: 20130411, end: 201810

REACTIONS (4)
  - Leg amputation [Recovered/Resolved]
  - Leg amputation [Recovered/Resolved]
  - Necrotising fasciitis [Recovered/Resolved]
  - Wound infection [Recovered/Resolved]

NARRATIVE: CASE EVENT DATE: 20181127
